FAERS Safety Report 7194397-X (Version None)
Quarter: 2010Q4

REPORT INFORMATION
  Report Type: 
  Country: None (occurrence: None)
  Receive Date: 20101223
  Receipt Date: 20101215
  Transmission Date: 20110411
  Serious: Yes (Hospitalization, Other)
  Sender: FDA-Public Use
  Company Number: US-ELI_LILLY_AND_COMPANY-US201012004345

PATIENT
  Sex: Male

DRUGS (12)
  1. HUMULIN 70/30 [Suspect]
     Indication: DIABETES MELLITUS
     Dosage: 34 U, 2/D
     Dates: start: 19970101
  2. PLAVIX [Concomitant]
     Indication: ANTICOAGULANT THERAPY
     Dosage: 75 MG, UNK
  3. COREG [Concomitant]
     Indication: HEART RATE
     Dosage: 3.125 MG, DAILY (1/D)
  4. ACCUPRIL [Concomitant]
     Dosage: 10 MG, UNK
  5. LIPITOR [Concomitant]
     Dosage: 20 MG, UNK
  6. AVODART [Concomitant]
     Dosage: 0.75 MG, UNK
  7. ASPIRIN [Concomitant]
     Dosage: 3.25 MG, DAILY (1/D)
  8. NEURONTIN [Concomitant]
     Dosage: 300 MG, UNK
  9. NEXIUM [Concomitant]
  10. ADVAIR [Concomitant]
  11. VERAMYST [Concomitant]
  12. SINGULAIR [Concomitant]
     Indication: LUNG DISORDER

REACTIONS (22)
  - ASTHMA [None]
  - BLOOD GLUCOSE DECREASED [None]
  - BLOOD GLUCOSE FLUCTUATION [None]
  - BLOOD GLUCOSE INCREASED [None]
  - CHRONIC OBSTRUCTIVE PULMONARY DISEASE [None]
  - GASTRIC DISORDER [None]
  - GLYCOSYLATED HAEMOGLOBIN INCREASED [None]
  - HERPES ZOSTER [None]
  - HYPOACUSIS [None]
  - MUSCLE SPASMS [None]
  - MYOCARDIAL INFARCTION [None]
  - NERVE INJURY [None]
  - NERVOUSNESS [None]
  - NEUROPATHY PERIPHERAL [None]
  - NOCTURIA [None]
  - PARAESTHESIA [None]
  - PERIPHERAL COLDNESS [None]
  - POOR QUALITY SLEEP [None]
  - PROSTATOMEGALY [None]
  - SCAR [None]
  - SLEEP APNOEA SYNDROME [None]
  - UNDERDOSE [None]
